FAERS Safety Report 6249039-4 (Version None)
Quarter: 2009Q2

REPORT INFORMATION
  Report Type: 
  Country: None (occurrence: None)
  Receive Date: 20090625
  Receipt Date: 20090619
  Transmission Date: 20091009
  Serious: Yes (Other)
  Sender: FDA-Public Use
  Company Number: CHPA2009US13770

PATIENT
  Age: 47 Year
  Sex: Male
  Weight: 97.1 kg

DRUGS (4)
  1. DENAVIR [Suspect]
     Indication: ORAL HERPES
     Dosage: EVERY 2 HOURS, TOPICAL
     Route: 061
     Dates: end: 20090614
  2. LAMOTRIGINE [Concomitant]
  3. LEVETIRACETAM [Concomitant]
  4. ZONISAMIDE [Concomitant]

REACTIONS (2)
  - CONVULSION [None]
  - HEADACHE [None]
